FAERS Safety Report 5344347-3 (Version None)
Quarter: 2007Q2

REPORT INFORMATION
  Report Type: 
  Country: None (occurrence: None)
  Receive Date: 20070604
  Receipt Date: 20070521
  Transmission Date: 20071010
  Serious: Yes (Other)
  Sender: FDA-Public Use
  Company Number: US-SHR-US-2007-019441

PATIENT
  Age: 55 Year
  Sex: Female

DRUGS (3)
  1. BETASERON [Suspect]
     Route: 058
     Dates: end: 20061201
  2. REBIF [Suspect]
     Dosage: 22 A?G, UNK
     Dates: end: 20051012
  3. LITHIUM CARBONATE [Concomitant]
     Dosage: 900 MG, DAILY

REACTIONS (3)
  - HEPATIC STEATOSIS [None]
  - LIVER FUNCTION TEST ABNORMAL [None]
  - LOCALISED INTRAABDOMINAL FLUID COLLECTION [None]
